FAERS Safety Report 6797135-5 (Version None)
Quarter: 2010Q2

REPORT INFORMATION
  Report Type: 
  Country: None (occurrence: None)
  Receive Date: 20100623
  Receipt Date: 20100612
  Transmission Date: 20101027
  Serious: Yes (Hospitalization, Other)
  Sender: FDA-Public Use
  Company Number: 2010AP001224

PATIENT
  Age: 69 Year
  Sex: Female

DRUGS (1)
  1. CITALOPRAM HYDROBROMIDE [Suspect]

REACTIONS (4)
  - DRUG WITHDRAWAL SYNDROME [None]
  - FALL [None]
  - HAEMATOMA [None]
  - INFLUENZA LIKE ILLNESS [None]
